FAERS Safety Report 7230366-9 (Version None)
Quarter: 2011Q1

REPORT INFORMATION
  Report Type: 
  Country: None (occurrence: None)
  Receive Date: 20110118
  Receipt Date: 20110110
  Transmission Date: 20110831
  Serious: Yes (Hospitalization)
  Sender: FDA-Public Use
  Company Number: ES-JNJFOC-20101206971

PATIENT
  Age: 66 Year
  Sex: Female

DRUGS (3)
  1. METHOTREXATE [Concomitant]
  2. PREDNISONE [Concomitant]
  3. REMICADE [Suspect]
     Indication: RHEUMATOID ARTHRITIS
     Route: 042

REACTIONS (4)
  - SEPSIS [None]
  - BONE ABSCESS [None]
  - INTERVERTEBRAL DISCITIS [None]
  - SALMONELLOSIS [None]
